FAERS Safety Report 11198295 (Version 1)
Quarter: 2015Q2

REPORT INFORMATION
  Report Type: Spontaneous
  Country: JP (occurrence: JP)
  Receive Date: 20150618
  Receipt Date: 20150618
  Transmission Date: 20150821
  Serious: Yes (Hospitalization)
  Sender: FDA-Public Use
  Company Number: JP-009507513-1505JPN012953

PATIENT
  Age: 62 Year
  Sex: Male
  Weight: 61 kg

DRUGS (3)
  1. REBETOL [Suspect]
     Active Substance: RIBAVIRIN
     Indication: CHRONIC HEPATITIS C
     Dosage: 600 MG, QD (DIVIDED DOSE FREQUENCY UNKNOWN)
     Route: 048
     Dates: start: 20140703, end: 20141016
  2. PEGINTRON [Suspect]
     Active Substance: PEGINTERFERON ALFA-2B
     Indication: CHRONIC HEPATITIS C
     Dosage: 80 MICROGRAM, QW (DIVIDED DOSE FREQUENCY UNKNOWN)
     Route: 058
     Dates: start: 20140703, end: 20141016
  3. SIMEPREVIR [Suspect]
     Active Substance: SIMEPREVIR
     Indication: CHRONIC HEPATITIS C
     Dosage: 100 MG, QD (DIVIDED DOSE FREQUENCY UNKNOWN)
     Route: 048
     Dates: start: 20140703, end: 20141016

REACTIONS (1)
  - Gallbladder perforation [Recovered/Resolved]

NARRATIVE: CASE EVENT DATE: 20141016
